FAERS Safety Report 23354390 (Version 1)
Quarter: 2024Q1

REPORT INFORMATION
  Report Type: Report from Study
  Country: CN (occurrence: CN)
  Receive Date: 20240101
  Receipt Date: 20240101
  Transmission Date: 20240410
  Serious: Yes (Other)
  Sender: FDA-Public Use
  Company Number: CN-Accord-398434

PATIENT

DRUGS (5)
  1. DECITABINE [Suspect]
     Active Substance: DECITABINE
     Indication: Acute myeloid leukaemia refractory
     Dosage: DAYS (D1-D5)
     Route: 042
  2. TUCIDINOSTAT [Suspect]
     Active Substance: TUCIDINOSTAT
     Indication: Acute myeloid leukaemia refractory
     Dosage: TWICE A WEEK ON DAYS 1, 4, 8, AND 11
     Route: 048
  3. ACLARUBICIN [Suspect]
     Active Substance: ACLARUBICIN
     Indication: Acute myeloid leukaemia refractory
     Dosage: DAYS (D3-D7)
     Route: 042
  4. CYTARABINE [Suspect]
     Active Substance: CYTARABINE
     Indication: Acute myeloid leukaemia refractory
     Dosage: ON D1-7 IF THE (WBC) COUNT GRATER THAN OR EQUAL TO 20X109 /L AND D3-D7 IF THE WBC COUNT  20X109 /L).
     Route: 042
  5. GRANULOCYTE COLONY-STIMULATING FACTOR NOS [Suspect]
     Active Substance: GRANULOCYTE COLONY-STIMULATING FACTOR NOS
     Indication: Acute myeloid leukaemia refractory

REACTIONS (1)
  - Cardiac failure [Unknown]
